FAERS Safety Report 16210937 (Version 1)
Quarter: 2019Q2

REPORT INFORMATION
  Report Type: Spontaneous
  Country: US (occurrence: US)
  Receive Date: 20190417
  Receipt Date: 20190417
  Transmission Date: 20190711
  Serious: Yes (Disabling)
  Sender: FDA-Public Use
  Company Number: None

PATIENT
  Age: 39 Year
  Sex: Male

DRUGS (3)
  1. BUPRENORPHINE/NALOXONE SUBLINGUAL FILM 8 MG/2 MG [Suspect]
     Active Substance: BUPRENORPHINE\NALOXONE
     Indication: BACK PAIN
     Dosage: ?          QUANTITY:1 STRIPS;?
     Route: 060
     Dates: start: 20190403, end: 20190415
  2. BUPRENORPHINE/NALOXONE SUBLINGUAL FILM 8 MG/2 MG [Suspect]
     Active Substance: BUPRENORPHINE\NALOXONE
     Indication: DRUG DEPENDENCE
     Dosage: ?          QUANTITY:1 STRIPS;?
     Route: 060
     Dates: start: 20190403, end: 20190415
  3. SUBOXONE [Concomitant]
     Active Substance: BUPRENORPHINE HYDROCHLORIDE\NALOXONE HYDROCHLORIDE

REACTIONS (4)
  - Rash [None]
  - Abdominal pain upper [None]
  - Product substitution issue [None]
  - Pruritus [None]

NARRATIVE: CASE EVENT DATE: 20190403
